FAERS Safety Report 5648982-4 (Version None)
Quarter: 2008Q1

REPORT INFORMATION
  Report Type: 
  Country: None (occurrence: None)
  Receive Date: 20080303
  Receipt Date: 20080303
  Transmission Date: 20080703
  Serious: Yes (Life-Threatening, Other)
  Sender: FDA-Public Use
  Company Number: None

PATIENT
  Sex: Male
  Weight: 90.7194 kg

DRUGS (1)
  1. CHANTIX [Suspect]
     Dates: start: 20071115, end: 20071219

REACTIONS (5)
  - AGGRESSION [None]
  - AMNESIA [None]
  - DISTURBANCE IN ATTENTION [None]
  - MOOD SWINGS [None]
  - SUICIDAL IDEATION [None]
